FAERS Safety Report 5597200-4 (Version None)
Quarter: 2007Q4

REPORT INFORMATION
  Report Type: 
  Country: None (occurrence: None)
  Receive Date: 20071221
  Receipt Date: 20070907
  Transmission Date: 20080405
  Serious: No
  Sender: FDA-Public Use
  Company Number: US-CVT-070156

PATIENT
  Age: 59 Year
  Sex: Male

DRUGS (10)
  1. RANEXA [Suspect]
     Indication: ANGINA PECTORIS
     Dosage: 500 MG, BID, ORAL
     Route: 048
     Dates: start: 20070718, end: 20070907
  2. LIPITOR [Concomitant]
  3. LOPRESSOR [Concomitant]
  4. ASPIRIN/00002701/ (ACETYSALICYLIC ACID) [Concomitant]
  5. PLAVIX [Concomitant]
  6. AMIODARONE/00133101/ (AMIODARONE) [Concomitant]
  7. COLACE (DOCUSATE SODIUM) [Concomitant]
  8. NEXIUM [Concomitant]
  9. FLOMAX/01280302/ (TAMSULOSIN HYDROCHLORIDE) [Concomitant]
  10. GLIPIZIDE [Concomitant]

REACTIONS (1)
  - PRURITUS GENERALISED [None]
